FAERS Safety Report 5583840-5 (Version None)
Quarter: 2008Q1

REPORT INFORMATION
  Report Type: 
  Country: None (occurrence: None)
  Receive Date: 20080108
  Receipt Date: 20080102
  Transmission Date: 20080703
  Serious: Yes (Hospitalization)
  Sender: FDA-Public Use
  Company Number: PHRM2008FR00444

PATIENT
  Age: 41 Year
  Sex: Female

DRUGS (4)
  1. TEGRETOL [Suspect]
     Indication: EPILEPSY
     Dosage: 2 TABS/MORNING + 1.5 TAB/EVENING/DAY
     Route: 048
     Dates: end: 20071029
  2. DEPAKENE [Suspect]
     Indication: EPILEPSY
     Dosage: 1 TAB/MORNING + 2 TABS/EVENING/DAY
     Route: 048
  3. LAMICTAL [Suspect]
     Indication: EPILEPSY
     Dosage: 100 MG, QD
     Route: 048
     Dates: end: 20071029
  4. LAMICTAL [Suspect]
     Dosage: 50 MG, QD
     Route: 048
     Dates: end: 20071029

REACTIONS (10)
  - AGITATION [None]
  - BLOOD CHLORIDE INCREASED [None]
  - BLOOD GLUCOSE DECREASED [None]
  - HYPERTHERMIA [None]
  - LEUKOPENIA [None]
  - MALAISE [None]
  - NEUTROPENIA [None]
  - PETIT MAL EPILEPSY [None]
  - PHOTOPHOBIA [None]
  - VOMITING [None]
